FAERS Safety Report 5089152-0 (Version None)
Quarter: 2006Q3

REPORT INFORMATION
  Report Type: 
  Country: None (occurrence: None)
  Receive Date: 20060727
  Receipt Date: 20060528
  Transmission Date: 20061208
  Serious: Yes (Other)
  Sender: FDA-Public Use
  Company Number: 2006070295

PATIENT
  Age: 41 Year
  Sex: Female
  Weight: 61.2356 kg

DRUGS (3)
  1. LYRICA [Suspect]
     Indication: DIZZINESS
     Dosage: 100 MG (100 MG, 1IN 1 D), UNKNOWN
     Dates: start: 20060429
  2. LYRICA [Suspect]
     Indication: HYPOAESTHESIA
     Dosage: 100 MG (100 MG, 1IN 1 D), UNKNOWN
     Dates: start: 20060429
  3. LYRICA [Suspect]
     Indication: PAIN
     Dosage: 100 MG (100 MG, 1IN 1 D), UNKNOWN
     Dates: start: 20060429

REACTIONS (4)
  - HEART RATE INCREASED [None]
  - HYPOAESTHESIA [None]
  - MUSCLE TWITCHING [None]
  - SOMNOLENCE [None]
